FAERS Safety Report 5916578-2 (Version None)
Quarter: 2008Q4

REPORT INFORMATION
  Report Type: 
  Country: None (occurrence: None)
  Receive Date: 20081013
  Receipt Date: 20080926
  Transmission Date: 20090506
  Serious: Yes (Other)
  Sender: FDA-Public Use
  Company Number: US-MERCK-0807USA05532

PATIENT
  Age: 84 Year
  Sex: Female

DRUGS (2)
  1. FOSAMAX [Suspect]
     Indication: OSTEOPOROSIS
     Route: 048
     Dates: start: 20020601, end: 20060101
  2. OSTEOFOS [Concomitant]
     Route: 065
     Dates: start: 20060101, end: 20080518

REACTIONS (3)
  - DIVERTICULITIS [None]
  - MYELODYSPLASTIC SYNDROME [None]
  - POLYP COLORECTAL [None]
